FAERS Safety Report 6746070-7 (Version None)
Quarter: 2010Q2

REPORT INFORMATION
  Report Type: 
  Country: None (occurrence: None)
  Receive Date: 20100528
  Receipt Date: 20100518
  Transmission Date: 20101027
  Serious: Yes (Other)
  Sender: FDA-Public Use
  Company Number: BE-PFIZER INC-2009280157

PATIENT
  Age: 40 Year
  Sex: Male
  Weight: 89 kg

DRUGS (1)
  1. FELDENE [Suspect]
     Indication: OSTEOARTHRITIS
     Dosage: DAILY, THEN TWICE A WEEK
     Route: 030
     Dates: start: 20080101, end: 20090101

REACTIONS (2)
  - INJECTION SITE NECROSIS [None]
  - LIPOMA [None]
